FAERS Safety Report 16554626 (Version 1)
Quarter: 2020Q3

REPORT INFORMATION
  Report Type: Spontaneous
  Country: GB (occurrence: GB)
  Receive Date: 20190710
  Receipt Date: 20190710
  Transmission Date: 20201104
  Serious: Yes (Other)
  Sender: FDA-Public Use
  Company Number: GB-ANIPHARMA-2019-UK-000117

PATIENT
  Age: 77 Year
  Sex: Male
  Weight: 71 kg

DRUGS (13)
  1. CANDESARTAN. [Suspect]
     Active Substance: CANDESARTAN
     Indication: PRODUCT USED FOR UNKNOWN INDICATION
     Dosage: 8 MG DAILY
     Route: 048
     Dates: start: 2005
  2. OMEPRAZOLE. [Suspect]
     Active Substance: OMEPRAZOLE
     Dosage: 20 MG QOD
     Route: 048
     Dates: start: 200510
  3. VENTOLIN [Suspect]
     Active Substance: ALBUTEROL SULFATE
     Dosage: 100 UG/INHAL PRN
     Route: 051
     Dates: start: 2003
  4. LEVOTHYROXINE. [Suspect]
     Active Substance: LEVOTHYROXINE
     Dosage: 25 MCG AND 50 MCG DAILY
     Route: 048
     Dates: start: 2009
  5. WARFARIN [Suspect]
     Active Substance: WARFARIN
     Dosage: 3 MG OR 4 MG DAILY
     Route: 048
     Dates: start: 2010
  6. IBANDRONIC ACID. [Suspect]
     Active Substance: IBANDRONIC ACID
     Dosage: 150 MG MONTH
     Route: 048
     Dates: start: 2006
  7. ADCAL?D3 [Suspect]
     Active Substance: CALCIUM CARBONATE\CHOLECALCIFEROL
     Dosage: 2 DF DAILY
     Route: 048
     Dates: start: 20170107
  8. MODULITE [SORBITOL\TRIMEBUTINE] [Suspect]
     Active Substance: SORBITOL\TRIMEBUTINE
     Dosage: 12 UG/INHAL UNK
     Route: 055
     Dates: start: 201809
  9. LEVOTHYROXINE. [Suspect]
     Active Substance: LEVOTHYROXINE
     Dosage: UNK
     Route: 065
  10. ATIMOS MODULITE [Suspect]
     Active Substance: FORMOTEROL FUMARATE
  11. SPIRIVA [Suspect]
     Active Substance: TIOTROPIUM BROMIDE MONOHYDRATE
     Dosage: 18 UG/INHAL DAILY
     Route: 055
     Dates: start: 2008
  12. BETAHISTINE [Suspect]
     Active Substance: BETAHISTINE
     Dosage: 16 MG UNK
     Route: 048
     Dates: start: 2006
  13. GLYCERYL TRINITRATE [Suspect]
     Active Substance: NITROGLYCERIN
     Dosage: 400 UG/INHAL UNK
     Route: 055
     Dates: start: 201904

REACTIONS (2)
  - Haematochezia [Unknown]
  - Frequent bowel movements [Unknown]
